FAERS Safety Report 5232838-5 (Version None)
Quarter: 2007Q1

REPORT INFORMATION
  Report Type: 
  Country: None (occurrence: None)
  Receive Date: 20070206
  Receipt Date: 20070206
  Transmission Date: 20070707
  Serious: Yes (Hospitalization, Other)
  Sender: FDA-Public Use
  Company Number: None

PATIENT
  Sex: Female
  Weight: 67.1324 kg

DRUGS (1)
  1. CRESTOR [Suspect]
     Indication: TYPE IIA HYPERLIPIDAEMIA
     Dosage: ONE PILL ONCE A DAY AT NIGH
     Dates: start: 20050930, end: 20061002

REACTIONS (7)
  - ACTIVITIES OF DAILY LIVING IMPAIRED [None]
  - BLOOD CHOLESTEROL ABNORMAL [None]
  - CHILLS [None]
  - DYSPNOEA EXERTIONAL [None]
  - INSOMNIA [None]
  - MYOPATHY [None]
  - PALPITATIONS [None]
